FAERS Safety Report 6426818-1 (Version None)
Quarter: 2009Q4

REPORT INFORMATION
  Report Type: 
  Country: None (occurrence: None)
  Receive Date: 20091103
  Receipt Date: 20091103
  Transmission Date: 20100525
  Serious: Yes (Life-Threatening, Hospitalization)
  Sender: FDA-Public Use
  Company Number: None

PATIENT
  Age: 75 Year
  Sex: Female

DRUGS (2)
  1. PREGABALIN [Suspect]
     Indication: PAIN
     Dosage: 150 MG BID PO
     Route: 048
     Dates: start: 20071001, end: 20080801
  2. GABAPENTIN [Suspect]
     Indication: PAIN
     Dosage: 300 MG TID PO
     Route: 048
     Dates: start: 20071001

REACTIONS (2)
  - HYPOVOLAEMIA [None]
  - RENAL FAILURE ACUTE [None]
